FAERS Safety Report 16667747 (Version 1)
Quarter: 2019Q3

REPORT INFORMATION
  Report Type: Report from Study
  Country: US (occurrence: US)
  Receive Date: 20190805
  Receipt Date: 20190805
  Transmission Date: 20191004
  Serious: Yes (Other)
  Sender: FDA-Public Use
  Company Number: US-AMGEN-USASL2019122211

PATIENT
  Age: 60 Year
  Sex: Female

DRUGS (1)
  1. REPATHA [Suspect]
     Active Substance: EVOLOCUMAB
     Indication: CORONARY ARTERY DISEASE
     Dosage: 140 MILLIGRAM, Q2WK
     Route: 065
     Dates: start: 2017

REACTIONS (22)
  - Headache [Unknown]
  - Dry skin [Unknown]
  - Chromaturia [Unknown]
  - Tinnitus [Unknown]
  - Blood pressure abnormal [Unknown]
  - Oropharyngeal pain [Unknown]
  - Decreased appetite [Unknown]
  - Heart rate abnormal [Unknown]
  - Dizziness [Unknown]
  - Vision blurred [Unknown]
  - Urinary incontinence [Unknown]
  - Pneumonia [Unknown]
  - Sinus congestion [Unknown]
  - Skin discolouration [Unknown]
  - Swelling face [Unknown]
  - Arthralgia [Unknown]
  - Eye swelling [Unknown]
  - Nausea [Unknown]
  - Back pain [Unknown]
  - Hypoaesthesia [Unknown]
  - Pain [Unknown]
  - Dysphonia [Unknown]

NARRATIVE: CASE EVENT DATE: 201907
